FAERS Safety Report 10052569 (Version 1)
Quarter: 2014Q2

REPORT INFORMATION
  Report Type: Spontaneous
  Country: US (occurrence: US)
  Receive Date: 20140402
  Receipt Date: 20140402
  Transmission Date: 20141212
  Serious: No
  Sender: FDA-Public Use
  Company Number: US-BAYER-2014-048089

PATIENT
  Age: 85 Year
  Sex: Male
  Weight: 86 kg

DRUGS (3)
  1. ALEVE CAPLET [Suspect]
     Indication: ARTHRITIS
     Dosage: 2 DF, QD
     Route: 048
     Dates: start: 201401
  2. ALEVE CAPLET [Suspect]
     Indication: ARTHRITIS
     Dosage: 3 DF, QD
     Dates: start: 201403
  3. CELEBREX [Concomitant]
     Dosage: UNK

REACTIONS (3)
  - Drug ineffective [None]
  - Incorrect drug administration duration [None]
  - Inappropriate schedule of drug administration [None]
